FAERS Safety Report 7071718-X (Version None)
Quarter: 2010Q4

REPORT INFORMATION
  Report Type: 
  Country: None (occurrence: None)
  Receive Date: 20101029
  Receipt Date: 20091013
  Transmission Date: 20110411
  Serious: No
  Sender: FDA-Public Use
  Company Number: A0811583A

PATIENT
  Age: 60 Year
  Sex: Female

DRUGS (3)
  1. ADVAIR DISKUS 100/50 [Suspect]
     Indication: ASTHMA
     Dosage: 2PUFF TWICE PER DAY
     Route: 055
     Dates: start: 20080901
  2. DIABETES MEDICATION [Concomitant]
  3. ALBUTEROL [Concomitant]

REACTIONS (4)
  - GINGIVAL DISORDER [None]
  - LUNG INFECTION [None]
  - ORAL INFECTION [None]
  - TONGUE ULCERATION [None]
